FAERS Safety Report 15583802 (Version 2)
Quarter: 2019Q1

REPORT INFORMATION
  Report Type: Spontaneous
  Country: US (occurrence: US)
  Receive Date: 20181104
  Receipt Date: 20190126
  Transmission Date: 20190417
  Serious: No
  Sender: FDA-Public Use
  Company Number: US-JNJFOC-20181022253

PATIENT
  Sex: Female

DRUGS (1)
  1. PALIPERIDONE ER [Suspect]
     Active Substance: PALIPERIDONE
     Indication: PRODUCT USED FOR UNKNOWN INDICATION
     Route: 048

REACTIONS (3)
  - Suspected product contamination [Unknown]
  - Product dose omission [Unknown]
  - Product contamination physical [Unknown]

NARRATIVE: CASE EVENT DATE: 20181010
